FAERS Safety Report 23775349 (Version 2)
Quarter: 2024Q4

REPORT INFORMATION
  Report Type: Spontaneous
  Country: PT (occurrence: PT)
  Receive Date: 20240423
  Receipt Date: 20241001
  Transmission Date: 20250115
  Serious: Yes (Other)
  Sender: ELI LILLY AND CO
  Company Number: None

PATIENT
  Age: 43 Year
  Sex: Female

DRUGS (2)
  1. OLUMIANT [Suspect]
     Active Substance: BARICITINIB
     Indication: Rheumatoid arthritis
     Dosage: 4 MG, DAILY
     Route: 048
     Dates: start: 20231004
  2. OLUMIANT [Suspect]
     Active Substance: BARICITINIB
     Dosage: 4 MG, DAILY
     Route: 048

REACTIONS (1)
  - Tooth abscess [Recovering/Resolving]

NARRATIVE: CASE EVENT DATE: 20231122
